FAERS Safety Report 21009672 (Version 1)
Quarter: 2022Q2

REPORT INFORMATION
  Report Type: Spontaneous
  Country: US (occurrence: US)
  Receive Date: 20220627
  Receipt Date: 20220627
  Transmission Date: 20220721
  Serious: No
  Sender: FDA-Public Use
  Company Number: US-GALTPHARMA-2021-US-014551

PATIENT
  Age: 78 Year
  Sex: Male
  Weight: 77.11 kg

DRUGS (1)
  1. ORPHENGESIC FORTE [Suspect]
     Active Substance: ASPIRIN\CAFFEINE\ORPHENADRINE CITRATE
     Indication: Pain
     Dosage: 1 TO 1.5 TABLETS PER DOSE
     Route: 048

REACTIONS (2)
  - Feeling jittery [Unknown]
  - Intentional product use issue [Unknown]
